FAERS Safety Report 10077440 (Version 4)
Quarter: 2014Q4

REPORT INFORMATION
  Report Type: Report from Study
  Country: US (occurrence: US)
  Receive Date: 20140414
  Receipt Date: 20141027
  Transmission Date: 20150528
  Serious: Yes (Hospitalization)
  Sender: FDA-Public Use
  Company Number: US-OTSUKA-US-2014-10529

PATIENT
  Age: 48 Year
  Sex: Female

DRUGS (10)
  1. OPC-41061 [Suspect]
     Active Substance: TOLVAPTAN
     Dosage: UNK
     Dates: start: 20140617
  2. ERGOCALCIFEROL. [Concomitant]
     Active Substance: ERGOCALCIFEROL
     Indication: VITAMIN D DEFICIENCY
     Dosage: 50000 IU, QW
     Route: 048
     Dates: start: 201305
  3. OPC-41061 [Suspect]
     Active Substance: TOLVAPTAN
     Indication: CONGENITAL CYSTIC KIDNEY DISEASE
     Dosage: 120 MG MILLIGRAM(S), QD
     Route: 048
     Dates: start: 20131016, end: 20140304
  4. ATENOLOL. [Concomitant]
     Active Substance: ATENOLOL
     Indication: PALPITATIONS
     Dosage: 50 MG MILLIGRAM(S), UNK
     Route: 048
     Dates: start: 200802, end: 20140304
  5. PROTONIX [Concomitant]
     Active Substance: PANTOPRAZOLE SODIUM
     Indication: GASTROOESOPHAGEAL REFLUX DISEASE
     Dosage: 40 MG MILLIGRAM(S), DAILY DOSE
     Route: 048
     Dates: start: 201104
  6. CYMBALTA [Concomitant]
     Active Substance: DULOXETINE HYDROCHLORIDE
     Indication: DEPRESSION
     Dosage: 20 MG MILLIGRAM(S), DAILY DOSE
     Route: 048
     Dates: start: 200604
  7. ACETAMINOPHEN. [Concomitant]
     Active Substance: ACETAMINOPHEN
     Indication: PAIN
     Dosage: 1000 MG MILLIGRAM(S), PRN
     Route: 048
     Dates: start: 1979
  8. METFORMIN [Concomitant]
     Active Substance: METFORMIN HYDROCHLORIDE
     Indication: TYPE 2 DIABETES MELLITUS
     Dosage: 500 MG MILLIGRAM(S), BID
     Route: 048
     Dates: start: 20140218
  9. LISINOPRIL. [Concomitant]
     Active Substance: LISINOPRIL
     Indication: HYPERTENSION
     Dosage: 10 MG MILLIGRAM(S), DAILY DOSE
     Route: 048
     Dates: start: 201001, end: 20140311
  10. SIMVASTATIN. [Concomitant]
     Active Substance: SIMVASTATIN
     Indication: HYPERLIPIDAEMIA
     Dosage: 20 MG MILLIGRAM(S), DAILY DOSE
     Route: 048
     Dates: start: 200807

REACTIONS (1)
  - Accelerated idioventricular rhythm [Recovered/Resolved]

NARRATIVE: CASE EVENT DATE: 20140303
